FAERS Safety Report 22605329 (Version 1)
Quarter: 2023Q2

REPORT INFORMATION
  Report Type: Other
  Country: None (occurrence: FR)
  Receive Date: 20230615
  Receipt Date: 20230615
  Transmission Date: 20230722
  Serious: Yes (Death)
  Sender: FDA-Public Use
  Company Number: FR-Nuvo Pharmaceuticals Inc-2142741

PATIENT
  Age: 26 Year
  Sex: Female

DRUGS (4)
  1. DIAZEPAM [Suspect]
     Active Substance: DIAZEPAM
     Indication: Product used for unknown indication
     Route: 065
  2. INSULIN NOS [Suspect]
     Active Substance: INSULIN NOS
     Route: 065
  3. LOXAPINE [Suspect]
     Active Substance: LOXAPINE
     Route: 065
  4. TIAPRIDE [Suspect]
     Active Substance: TIAPRIDE
     Route: 065

REACTIONS (1)
  - Hypoglycaemia [Fatal]
